FAERS Safety Report 4697830-8 (Version None)
Quarter: 2005Q2

REPORT INFORMATION
  Report Type: 
  Country: None (occurrence: None)
  Receive Date: 20050621
  Receipt Date: 20050621
  Transmission Date: 20051028
  Serious: Yes (Life-Threatening, Hospitalization)
  Sender: FDA-Public Use
  Company Number: None

PATIENT
  Age: 44 Year
  Sex: Female
  Weight: 77.1115 kg

DRUGS (2)
  1. BEXTRA [Suspect]
     Indication: ARTHRITIS
     Dosage: 10   DAILY
     Dates: start: 20010202, end: 20050408
  2. COUMADIN [Concomitant]

REACTIONS (1)
  - PULMONARY EMBOLISM [None]
